FAERS Safety Report 4796949-0 (Version None)
Quarter: 2005Q4

REPORT INFORMATION
  Report Type: 
  Country: None (occurrence: None)
  Receive Date: 20051013
  Receipt Date: 20051004
  Transmission Date: 20060501
  Serious: Yes (Other)
  Sender: FDA-Public Use
  Company Number: US-JNJFOC-20050803794

PATIENT
  Age: 30 Year
  Sex: Female
  Weight: 70.31 kg

DRUGS (2)
  1. ORTHO TRI-CYCLEN LO [Suspect]
     Route: 048
     Dates: start: 20050601, end: 20050810
  2. NEXIUM [Concomitant]

REACTIONS (4)
  - ABORTION SPONTANEOUS [None]
  - BREAST TENDERNESS [None]
  - DRUG EXPOSURE DURING PREGNANCY [None]
  - PREGNANCY ON ORAL CONTRACEPTIVE [None]
